FAERS Safety Report 9017168 (Version 1)
Quarter: 2013Q1

REPORT INFORMATION
  Report Type: Spontaneous
  Country: US (occurrence: US)
  Receive Date: 20130117
  Receipt Date: 20130117
  Transmission Date: 20140127
  Serious: Yes (Hospitalization)
  Sender: FDA-Public Use
  Company Number: US-BAYER-2013-005083

PATIENT
  Age: 20 Year
  Sex: Female
  Weight: 131.52 kg

DRUGS (5)
  1. YASMIN [Suspect]
  2. XENADRINE RFA-1 [Concomitant]
     Indication: WEIGHT DECREASED
  3. ALBUTEROL [Concomitant]
  4. MORPHINE [Concomitant]
     Indication: PAIN
  5. PERCOCET [Concomitant]
     Indication: PAIN

REACTIONS (1)
  - Pulmonary embolism [None]
